FAERS Safety Report 8549392-2 (Version None)
Quarter: 2012Q3

REPORT INFORMATION
  Report Type: 
  Country: None (occurrence: None)
  Receive Date: 20120730
  Receipt Date: 20120719
  Transmission Date: 20120928
  Serious: Yes (Life-Threatening)
  Sender: FDA-Public Use
  Company Number: NL-CELGENEUS-114-21880-12070545

PATIENT
  Sex: Male
  Weight: 75 kg

DRUGS (8)
  1. DAUNORUBICIN HCL [Suspect]
     Route: 041
     Dates: start: 20120615
  2. FLUCONAZOLE [Concomitant]
     Indication: PRODUCT USED FOR UNKNOWN INDICATION
     Route: 048
     Dates: start: 20120611, end: 20120629
  3. CIPROFLOXACIN HCL [Concomitant]
     Indication: PRODUCT USED FOR UNKNOWN INDICATION
     Route: 048
     Dates: start: 20120611, end: 20120629
  4. TEMAZEPAM [Concomitant]
     Indication: SLEEP DISORDER
     Route: 048
     Dates: start: 20120612, end: 20120629
  5. CYTARABINE [Suspect]
     Route: 041
     Dates: start: 20120615
  6. REVLIMID [Suspect]
     Route: 048
     Dates: start: 20120615, end: 20120629
  7. LISINOPRIL [Concomitant]
     Indication: PRODUCT USED FOR UNKNOWN INDICATION
     Route: 048
     Dates: start: 20120611, end: 20120629
  8. COLISTIN [Concomitant]
     Indication: PRODUCT USED FOR UNKNOWN INDICATION
     Dosage: 5/200
     Route: 048
     Dates: start: 20120611, end: 20120629

REACTIONS (2)
  - RESPIRATORY FAILURE [None]
  - PNEUMONIA [None]
